FAERS Safety Report 17916275 (Version 1)
Quarter: 2020Q2

REPORT INFORMATION
  Report Type: Spontaneous
  Country: US (occurrence: US)
  Receive Date: 20200619
  Receipt Date: 20200619
  Transmission Date: 20200714
  Serious: No
  Sender: FDA-Public Use
  Company Number: NVSC2020US172062

PATIENT
  Age: 80 Year
  Sex: Female

DRUGS (1)
  1. VOLTAREN [Suspect]
     Active Substance: DICLOFENAC SODIUM
     Indication: SPONDYLITIS
     Dosage: UNK
     Route: 065
     Dates: start: 20200609, end: 20200610

REACTIONS (6)
  - Dysstasia [Recovered/Resolved]
  - Product use in unapproved indication [Unknown]
  - Tremor [Recovered/Resolved]
  - Palpitations [Recovered/Resolved]
  - Ill-defined disorder [Recovered/Resolved]
  - Product administered at inappropriate site [Unknown]

NARRATIVE: CASE EVENT DATE: 20200609
